FAERS Safety Report 19148179 (Version 1)
Quarter: 2021Q2

REPORT INFORMATION
  Report Type: Spontaneous
  Country: US (occurrence: US)
  Receive Date: 20210417
  Receipt Date: 20210417
  Transmission Date: 20210717
  Serious: No
  Sender: FDA-Public Use
  Company Number: US-JNJFOC-20210415294

PATIENT
  Age: 70 Year
  Sex: Female
  Weight: 76.2 kg

DRUGS (18)
  1. IBUPROFEN. [Suspect]
     Active Substance: IBUPROFEN
     Indication: DECREASED APPETITE
  2. HYDROCHLOROTHIAZIDE. [Concomitant]
     Active Substance: HYDROCHLOROTHIAZIDE
     Indication: HYPERTENSION
     Route: 065
  3. PAROXETINE. [Concomitant]
     Active Substance: PAROXETINE
     Indication: DEPRESSION
     Route: 065
  4. FLUTICASONE PROPIONATE. [Concomitant]
     Active Substance: FLUTICASONE PROPIONATE
     Indication: SINUS OPERATION
     Dosage: ONE SPRAY ONE DAY
     Route: 065
  5. TYLENOL [Suspect]
     Active Substance: ACETAMINOPHEN
     Indication: DECREASED APPETITE
  6. IBUPROFEN. [Suspect]
     Active Substance: IBUPROFEN
     Indication: PAIN
  7. SUCRALFATE. [Concomitant]
     Active Substance: SUCRALFATE
     Indication: GASTRIC DISORDER
     Route: 065
  8. TYLENOL [Suspect]
     Active Substance: ACETAMINOPHEN
     Indication: SOMNOLENCE
  9. IBUPROFEN. [Suspect]
     Active Substance: IBUPROFEN
     Indication: DIARRHOEA
  10. ATORVASTATIN [Concomitant]
     Active Substance: ATORVASTATIN
     Indication: BLOOD CHOLESTEROL
     Route: 065
  11. TYLENOL [Suspect]
     Active Substance: ACETAMINOPHEN
     Indication: PAIN
  12. IBUPROFEN. [Suspect]
     Active Substance: IBUPROFEN
     Indication: NAUSEA
     Route: 065
     Dates: start: 20210322
  13. DICYCLOMINE [Concomitant]
     Active Substance: DICYCLOMINE HYDROCHLORIDE
     Indication: GASTRIC DISORDER
     Route: 048
  14. TYLENOL [Suspect]
     Active Substance: ACETAMINOPHEN
     Indication: GASTRIC DISORDER
  15. IBUPROFEN. [Suspect]
     Active Substance: IBUPROFEN
     Indication: SOMNOLENCE
  16. IBUPROFEN. [Suspect]
     Active Substance: IBUPROFEN
     Indication: GASTRIC DISORDER
  17. TYLENOL [Suspect]
     Active Substance: ACETAMINOPHEN
     Indication: NAUSEA
     Route: 065
     Dates: start: 20210322
  18. TYLENOL [Suspect]
     Active Substance: ACETAMINOPHEN
     Indication: DIARRHOEA

REACTIONS (1)
  - Product use in unapproved indication [Unknown]

NARRATIVE: CASE EVENT DATE: 20210322
